FAERS Safety Report 17978481 (Version 1)
Quarter: 2020Q3

REPORT INFORMATION
  Report Type: Spontaneous
  Country: FR (occurrence: FR)
  Receive Date: 20200703
  Receipt Date: 20200703
  Transmission Date: 20201103
  Serious: Yes (Hospitalization)
  Sender: FDA-Public Use
  Company Number: FR-TEVA-2020-FR-1794069

PATIENT
  Age: 62 Year
  Sex: Female

DRUGS (2)
  1. CHLORHYDRATE DE VERAPAMIL [Suspect]
     Active Substance: VERAPAMIL HYDROCHLORIDE
     Indication: HYPERTENSION
     Dosage: 240MG
     Route: 048
     Dates: start: 20190715, end: 20190807
  2. RAPAMUNE [Interacting]
     Active Substance: SIROLIMUS
     Indication: RENAL TRANSPLANT
     Dosage: 1MG
     Route: 048

REACTIONS (3)
  - Overdose [Recovered/Resolved]
  - Drug interaction [Unknown]
  - Proteinuria [Recovered/Resolved]

NARRATIVE: CASE EVENT DATE: 20190807
